FAERS Safety Report 9571540 (Version 1)
Quarter: 2013Q3

REPORT INFORMATION
  Report Type: Spontaneous
  Country: FR (occurrence: None)
  Receive Date: 20130927
  Receipt Date: 20130927
  Transmission Date: 20140515
  Serious: Yes (Hospitalization)
  Sender: FDA-Public Use
  Company Number: 1916958

PATIENT
  Age: 41 Year
  Sex: Female

DRUGS (2)
  1. CARBOPLATIN [Suspect]
     Indication: OVARIAN CANCER
     Route: 041
     Dates: start: 20091124, end: 20091125
  2. PACLITAXEL EBEWE [Concomitant]

REACTIONS (5)
  - Vertigo [None]
  - Hot flush [None]
  - Vomiting [None]
  - Pruritus [None]
  - Heart rate increased [None]
